FAERS Safety Report 6126256-5 (Version None)
Quarter: 2009Q1

REPORT INFORMATION
  Report Type: 
  Country: None (occurrence: None)
  Receive Date: 20090318
  Receipt Date: 20090303
  Transmission Date: 20090719
  Serious: Yes (Other)
  Sender: FDA-Public Use
  Company Number: 2009S1003736

PATIENT
  Sex: Male

DRUGS (1)
  1. TRIFLUOPERAZINE HCL [Suspect]
     Indication: DEPRESSION
     Dosage: 2 MG;DAILY

REACTIONS (5)
  - AGITATION [None]
  - ASTHENIA [None]
  - DRUG WITHDRAWAL SYNDROME [None]
  - DYSPHORIA [None]
  - INSOMNIA [None]
